FAERS Safety Report 9406076 (Version 1)
Quarter: 2013Q3

REPORT INFORMATION
  Report Type: Spontaneous
  Country: US (occurrence: US)
  Receive Date: 20130717
  Receipt Date: 20130717
  Transmission Date: 20140515
  Serious: Yes (Other)
  Sender: FDA-Public Use
  Company Number: US-PFIZER INC-2013210462

PATIENT
  Age: 67 Year
  Sex: Female
  Weight: 65.3 kg

DRUGS (6)
  1. ENBREL [Suspect]
     Dosage: UNK
     Route: 065
  2. METHOTREXATE SODIUM [Suspect]
     Dosage: UNK
     Dates: end: 201304
  3. HUMIRA [Suspect]
     Indication: RHEUMATOID ARTHRITIS
     Dosage: 40 MG, Q2WK
     Route: 058
     Dates: start: 2005
  4. SYNTHROID [Concomitant]
     Indication: HYPOTHYROIDISM
     Dosage: UNK
  5. VITAMIN D [Concomitant]
     Dosage: UNK
  6. CENTRUM FORTE [Concomitant]
     Dosage: UNK

REACTIONS (9)
  - Candida infection [Recovered/Resolved]
  - Haemoglobin decreased [Unknown]
  - Oral mucosal erythema [Unknown]
  - Stomatitis [Unknown]
  - Oral mucosal discolouration [Unknown]
  - Oral pain [Unknown]
  - Oral discomfort [Unknown]
  - Drug ineffective [Unknown]
  - Anaemia [Unknown]
